FAERS Safety Report 10037124 (Version 1)
Quarter: 2014Q1

REPORT INFORMATION
  Report Type: Spontaneous
  Country: US (occurrence: None)
  Receive Date: 20140324
  Receipt Date: 20140324
  Transmission Date: 20141002
  Serious: Yes (Other)
  Sender: FDA-Public Use
  Company Number: 2014P1002209

PATIENT
  Age: 42 Year
  Sex: Female

DRUGS (4)
  1. HYDROCORTISONE [Suspect]
     Indication: T-CELL TYPE ACUTE LEUKAEMIA
     Route: 037
  2. METHOTREXATE [Suspect]
     Indication: T-CELL TYPE ACUTE LEUKAEMIA
     Route: 037
  3. CYTARABINE [Suspect]
     Indication: T-CELL TYPE ACUTE LEUKAEMIA
     Route: 037
  4. NELARABINE [Suspect]
     Indication: T-CELL TYPE ACUTE LEUKAEMIA

REACTIONS (15)
  - Hypoaesthesia [None]
  - Balance disorder [None]
  - Walking aid user [None]
  - Wheelchair user [None]
  - Loss of proprioception [None]
  - Decreased vibratory sense [None]
  - Sensory loss [None]
  - Muscular weakness [None]
  - Hyporeflexia [None]
  - Nerve conduction studies abnormal [None]
  - Stem cell transplant [None]
  - Treatment failure [None]
  - Gait disturbance [None]
  - Myelopathy [None]
  - Oncologic complication [None]
